FAERS Safety Report 20480322 (Version 3)
Quarter: 2022Q2

REPORT INFORMATION
  Report Type: Spontaneous
  Country: ES (occurrence: ES)
  Receive Date: 20220216
  Receipt Date: 20220407
  Transmission Date: 20220721
  Serious: No
  Sender: FDA-Public Use
  Company Number: ES-JNJFOC-20220216640

PATIENT
  Sex: Female

DRUGS (3)
  1. FENTANYL [Suspect]
     Active Substance: FENTANYL
     Indication: Back disorder
     Dosage: STRENGTH: 25 MCG/HR; ONE PATCH 25 MCG EVERY 72H OR 2 PATCHES 12 MCG EVERY 72 HOURS
     Route: 062
  2. FENTANYL [Suspect]
     Active Substance: FENTANYL
     Dosage: STRENGTH: 12 MCG
     Route: 062
  3. FENTANYL [Suspect]
     Active Substance: FENTANYL

REACTIONS (2)
  - Product adhesion issue [Unknown]
  - Product dose omission issue [Unknown]
